FAERS Safety Report 7124232-7 (Version None)
Quarter: 2010Q4

REPORT INFORMATION
  Report Type: 
  Country: None (occurrence: None)
  Receive Date: 20101126
  Receipt Date: 20101115
  Transmission Date: 20110411
  Serious: Yes (Other)
  Sender: FDA-Public Use
  Company Number: US-ELI_LILLY_AND_COMPANY-US201009002936

PATIENT
  Age: 64 Year
  Sex: Male
  Weight: 82.086 kg

DRUGS (6)
  1. EFFIENT [Suspect]
     Indication: ACUTE CORONARY SYNDROME
     Dosage: 60 MG, UNKNOWN
  2. EFFIENT [Suspect]
     Dosage: 10 MG, UNKNOWN
     Dates: start: 20100810, end: 20100823
  3. ASPIRIN [Concomitant]
     Dosage: 81 MG, DAILY (1/D)
  4. LISINOPRIL [Concomitant]
     Dosage: 10 MG, DAILY (1/D)
     Route: 065
  5. LOPRESSOR [Concomitant]
     Dosage: 50 MG, 2/D
     Route: 065
  6. PRAVACHOL [Concomitant]
     Dosage: 40 MG, UNKNOWN
     Route: 065

REACTIONS (2)
  - COLORECTAL CANCER [None]
  - RECTAL HAEMORRHAGE [None]
